FAERS Safety Report 8943770 (Version 1)
Quarter: 2012Q4

REPORT INFORMATION
  Report Type: 
  Country: GB (occurrence: GB)
  Receive Date: 20121204
  Receipt Date: 20121204
  Transmission Date: 20130627
  Serious: Yes (Other)
  Sender: FDA-Public Use
  Company Number: GB-PFIZER INC-2012298491

PATIENT
  Age: 47 Year
  Sex: Male
  Weight: 98 kg

DRUGS (4)
  1. CHAMPIX [Suspect]
     Indication: SMOKING CESSATION THERAPY
     Dosage: 1 mg, 2x/day
     Route: 048
     Dates: start: 20120911, end: 20121009
  2. SOLPADOL [Concomitant]
     Dosage: UNK
  3. NAPROXEN [Concomitant]
     Indication: BACK PAIN
     Dosage: UNK
  4. TRAMADOL [Concomitant]
     Indication: BACK PAIN
     Dosage: UNK

REACTIONS (11)
  - Mood altered [Not Recovered/Not Resolved]
  - Insomnia [Recovering/Resolving]
  - Anger [Not Recovered/Not Resolved]
  - Anxiety [Not Recovered/Not Resolved]
  - Abnormal dreams [Recovering/Resolving]
  - Dry mouth [Not Recovered/Not Resolved]
  - Nightmare [Not Recovered/Not Resolved]
  - Micturition disorder [Not Recovered/Not Resolved]
  - Chest discomfort [Not Recovered/Not Resolved]
  - Panic attack [Not Recovered/Not Resolved]
  - Depressed mood [Not Recovered/Not Resolved]
